FAERS Safety Report 17929294 (Version 1)
Quarter: 2020Q2

REPORT INFORMATION
  Report Type: Spontaneous
  Country: HU (occurrence: HU)
  Receive Date: 20200623
  Receipt Date: 20200623
  Transmission Date: 20200714
  Serious: Yes (Other)
  Sender: FDA-Public Use
  Company Number: NVSC2020HU130527

PATIENT
  Sex: Female

DRUGS (2)
  1. IMATINIB SANDOZ [Suspect]
     Active Substance: IMATINIB MESYLATE
     Indication: CHRONIC MYELOID LEUKAEMIA
     Route: 065
  2. TASIGNA [Suspect]
     Active Substance: NILOTINIB
     Indication: CHRONIC MYELOID LEUKAEMIA
     Dosage: UNK
     Route: 065
     Dates: start: 2016

REACTIONS (8)
  - Lip erythema [Unknown]
  - Skin exfoliation [Unknown]
  - Heart rate decreased [Unknown]
  - Throat tightness [Unknown]
  - Heart rate irregular [Unknown]
  - Stevens-Johnson syndrome [Unknown]
  - Lip swelling [Unknown]
  - Rash erythematous [Unknown]

NARRATIVE: CASE EVENT DATE: 2016
